FAERS Safety Report 10907683 (Version 1)
Quarter: 2015Q1

REPORT INFORMATION
  Report Type: Spontaneous
  Country: US (occurrence: US)
  Receive Date: 20150312
  Receipt Date: 20150312
  Transmission Date: 20150721
  Serious: No
  Sender: FDA-Public Use
  Company Number: US-INCYTE CORPORATION-2014IN003476

PATIENT
  Age: 72 Year
  Sex: Male

DRUGS (4)
  1. PROPAFENONE. [Concomitant]
     Active Substance: PROPAFENONE
  2. RAPAFLO [Concomitant]
     Active Substance: SILODOSIN
  3. ULORIC [Concomitant]
     Active Substance: FEBUXOSTAT
  4. JAKAFI [Suspect]
     Active Substance: RUXOLITINIB
     Indication: MYELOFIBROSIS
     Dosage: 5 MG, BID
     Route: 048
     Dates: start: 2011

REACTIONS (2)
  - Abdominal pain upper [Unknown]
  - Diarrhoea [Unknown]

NARRATIVE: CASE EVENT DATE: 201409
